FAERS Safety Report 19131792 (Version 2)
Quarter: 2021Q2

REPORT INFORMATION
  Report Type: Spontaneous
  Country: PK (occurrence: PK)
  Receive Date: 20210414
  Receipt Date: 20210422
  Transmission Date: 20210717
  Serious: Yes (Hospitalization)
  Sender: FDA-Public Use
  Company Number: PK-NOVOPROD-802049

PATIENT
  Age: 80 Year
  Sex: Male

DRUGS (1)
  1. RYZODEG 70/30 [Suspect]
     Active Substance: INSULIN ASPART\INSULIN DEGLUDEC
     Indication: TYPE 2 DIABETES MELLITUS
     Dosage: 70 UNITS
     Route: 058
     Dates: start: 20200406

REACTIONS (1)
  - COVID-19 [Not Recovered/Not Resolved]

NARRATIVE: CASE EVENT DATE: 20210315
